FAERS Safety Report 24419080 (Version 2)
Quarter: 2024Q4

REPORT INFORMATION
  Report Type: Spontaneous
  Country: CN (occurrence: CN)
  Receive Date: 20241009
  Receipt Date: 20241018
  Transmission Date: 20250115
  Serious: No
  Sender: ROCHE
  Company Number: CN-BoehringerIngelheim-2023-BI-274716

PATIENT
  Age: 54 Year
  Sex: Female
  Weight: 50.1 kg

DRUGS (5)
  1. ALTEPLASE [Suspect]
     Active Substance: ALTEPLASE
     Indication: Thrombolysis
     Route: 042
     Dates: start: 20231120, end: 20231120
  2. ALTEPLASE [Suspect]
     Active Substance: ALTEPLASE
     Route: 042
     Dates: start: 20231120, end: 20231120
  3. INDOMETHACIN [Suspect]
     Active Substance: INDOMETHACIN
     Indication: Product used for unknown indication
     Dosage: DOSAGE FORM: PATCHES
     Route: 065
  4. SODIUM CHLORIDE [Concomitant]
     Active Substance: SODIUM CHLORIDE
     Indication: Drug therapy
     Route: 042
     Dates: start: 20231120, end: 20231120
  5. SODIUM CHLORIDE [Concomitant]
     Active Substance: SODIUM CHLORIDE
     Route: 042
     Dates: start: 20231120, end: 20231120

REACTIONS (1)
  - Gingival bleeding [Recovered/Resolved]

NARRATIVE: CASE EVENT DATE: 20231120
